FAERS Safety Report 21499024 (Version 3)
Quarter: 2022Q4

REPORT INFORMATION
  Report Type: Spontaneous
  Country: US (occurrence: US)
  Receive Date: 20221024
  Receipt Date: 20221202
  Transmission Date: 20230112
  Serious: Yes (Death, Hospitalization)
  Sender: FDA-Public Use
  Company Number: US-NOVARTISTESTPH-NVSC2022US236244

PATIENT
  Age: 65 Year
  Sex: Male
  Weight: 189.08 kg

DRUGS (2)
  1. PLUVICTO [Suspect]
     Active Substance: LUTETIUM LU-177 VIPIVOTIDE TETRAXETAN
     Indication: Prostate cancer
     Dosage: 200 MCI
     Route: 042
     Dates: start: 20220907
  2. XGEVA [Concomitant]
     Active Substance: DENOSUMAB
     Indication: Product used for unknown indication
     Dosage: UNK (120 MG/1.7ML)
     Route: 065
     Dates: start: 20220914

REACTIONS (3)
  - Full blood count decreased [Fatal]
  - Cardio-respiratory arrest [Fatal]
  - Illness [Unknown]

NARRATIVE: CASE EVENT DATE: 20221011
